FAERS Safety Report 15489858 (Version 1)
Quarter: 2018Q4

REPORT INFORMATION
  Report Type: Spontaneous
  Country: US (occurrence: US)
  Receive Date: 20181004
  Receipt Date: 20181004
  Transmission Date: 20190205
  Serious: Yes (Disabling, Congenital Anomaly)
  Sender: FDA-Public Use
  Company Number: None

PATIENT
  Age: 40 Year
  Sex: Female
  Weight: 80.74 kg

DRUGS (1)
  1. NUVARING [Suspect]
     Active Substance: ETHINYL ESTRADIOL\ETONOGESTREL
     Indication: CONTRACEPTION

REACTIONS (11)
  - Headache [None]
  - Nausea [None]
  - Libido decreased [None]
  - Mood altered [None]
  - Depression [None]
  - Migraine [None]
  - Weight increased [None]
  - Dizziness [None]
  - Increased appetite [None]
  - Vulvovaginal dryness [None]
  - Decreased appetite [None]

NARRATIVE: CASE EVENT DATE: 20180223
